FAERS Safety Report 21771134 (Version 1)
Quarter: 2022Q4

REPORT INFORMATION
  Report Type: Other
  Country: None (occurrence: GB)
  Receive Date: 20221223
  Receipt Date: 20221223
  Transmission Date: 20230113
  Serious: Yes (Death, Other)
  Sender: FDA-Public Use
  Company Number: GB-Nuvo Pharmaceuticals Inc-2136126

PATIENT
  Age: 30 Year
  Sex: Male

DRUGS (10)
  1. DIAZEPAM [Suspect]
     Active Substance: DIAZEPAM
     Indication: Product used for unknown indication
     Route: 065
  2. MORPHINE SULFATE [Suspect]
     Active Substance: MORPHINE SULFATE
     Route: 065
  3. CODEINE [Suspect]
     Active Substance: CODEINE
     Route: 065
  4. 6-ACETYLMORPHINE [Suspect]
     Active Substance: 6-ACETYLMORPHINE
     Route: 065
  5. NOSCAPINE [Suspect]
     Active Substance: NOSCAPINE
     Route: 065
  6. PAPAVERINE HYDROCHLORIDE [Suspect]
     Active Substance: PAPAVERINE HYDROCHLORIDE
     Route: 065
  7. PREGABALIN [Suspect]
     Active Substance: PREGABALIN
     Route: 065
  8. MIRTAZAPINE [Suspect]
     Active Substance: MIRTAZAPINE
     Route: 065
  9. CANNABIS SATIVA SUBSP. INDICA TOP [Suspect]
     Active Substance: CANNABIS SATIVA SUBSP. INDICA TOP
     Route: 065
  10. FLUALPRAZOLAM [Suspect]
     Active Substance: FLUALPRAZOLAM
     Route: 065

REACTIONS (1)
  - Toxicity to various agents [Fatal]
